FAERS Safety Report 7478520-5 (Version None)
Quarter: 2011Q2

REPORT INFORMATION
  Report Type: 
  Country: None (occurrence: None)
  Receive Date: 20110513
  Receipt Date: 20110503
  Transmission Date: 20111010
  Serious: Yes (Death, Other)
  Sender: FDA-Public Use
  Company Number: US-PURDUE-USA-2011-0063994

PATIENT
  Age: 60 Year
  Sex: Female

DRUGS (4)
  1. MORPHINE SULFATE [Suspect]
     Indication: PRODUCT USED FOR UNKNOWN INDICATION
  2. OXYCONTIN [Suspect]
     Indication: PRODUCT USED FOR UNKNOWN INDICATION
     Dosage: 80 MG, SEE TEXT
  3. MARIJUANA [Suspect]
     Indication: PRODUCT USED FOR UNKNOWN INDICATION
  4. COCAINE [Suspect]
     Indication: DRUG ABUSE

REACTIONS (5)
  - ABDOMINAL DISTENSION [None]
  - NAUSEA [None]
  - SEPSIS [None]
  - ABDOMINAL PAIN UPPER [None]
  - SUBSTANCE ABUSE [None]
